FAERS Safety Report 12759247 (Version 5)
Quarter: 2016Q4

REPORT INFORMATION
  Report Type: Report from Study
  Country: KP (occurrence: KR)
  Receive Date: 20160919
  Receipt Date: 20161227
  Transmission Date: 20170207
  Serious: Yes (Hospitalization, Other)
  Sender: FDA-Public Use
  Company Number: DE-ACTELION-A-NJ2016-142398

PATIENT
  Age: 31 Year
  Sex: Male
  Weight: 69 kg

DRUGS (2)
  1. TRACLEER [Concomitant]
     Active Substance: BOSENTAN
     Indication: PULMONARY ARTERIAL HYPERTENSION
     Dosage: UNK
     Route: 048
  2. VENTAVIS [Suspect]
     Active Substance: ILOPROST
     Indication: PULMONARY ARTERIAL HYPERTENSION
     Dosage: UNK
     Route: 055
     Dates: start: 20150403

REACTIONS (16)
  - Liver function test increased [Unknown]
  - Weight increased [Recovering/Resolving]
  - Cardiac disorder [Unknown]
  - Condition aggravated [Unknown]
  - Oedema peripheral [Not Recovered/Not Resolved]
  - Oxygen saturation decreased [Recovered/Resolved]
  - Hypotension [Recovered/Resolved]
  - Product use issue [Recovering/Resolving]
  - Pulmonary arterial hypertension [Unknown]
  - Hypersomnia [Unknown]
  - Nasopharyngitis [Not Recovered/Not Resolved]
  - Decreased appetite [Recovering/Resolving]
  - Feeling abnormal [Unknown]
  - Asthenia [Unknown]
  - Food aversion [Recovered/Resolved]
  - Pain [Unknown]

NARRATIVE: CASE EVENT DATE: 2015
